FAERS Safety Report 13556927 (Version 5)
Quarter: 2021Q1

REPORT INFORMATION
  Report Type: Report from Study
  Country: US (occurrence: US)
  Receive Date: 20170517
  Receipt Date: 20210122
  Transmission Date: 20210419
  Serious: Yes (Hospitalization, Other)
  Sender: FDA-Public Use
  Company Number: US-ACADIA PHARMACEUTICALS INC.-ACA-2017-002639

PATIENT
  Age: 85 Year
  Sex: Female

DRUGS (4)
  1. ASPIRIN [ACETYLSALICYLIC ACID] [Suspect]
     Active Substance: ASPIRIN
     Indication: RENAL ARTERY STENT PLACEMENT
  2. PLAVIX [Suspect]
     Active Substance: CLOPIDOGREL BISULFATE
     Indication: RENAL ARTERY STENT PLACEMENT
  3. NUPLAZID [Suspect]
     Active Substance: PIMAVANSERIN TARTRATE
     Indication: PARKINSON^S DISEASE
     Dosage: 34 MG, QD
     Route: 048
  4. NUPLAZID [Suspect]
     Active Substance: PIMAVANSERIN TARTRATE
     Indication: PARKINSON^S DISEASE
     Dosage: 34 MG, QD
     Route: 048
     Dates: start: 20160923

REACTIONS (9)
  - Syncope [Unknown]
  - Dizziness [Unknown]
  - Gingival swelling [Unknown]
  - Large intestinal haemorrhage [Unknown]
  - Tongue disorder [Unknown]
  - Oral pain [Unknown]
  - Blood pressure decreased [Unknown]
  - Oral pain [Unknown]
  - Swelling [Unknown]

NARRATIVE: CASE EVENT DATE: 20170717
